FAERS Safety Report 8988258 (Version 2)
Quarter: 2013Q4

REPORT INFORMATION
  Report Type: Spontaneous
  Country: US (occurrence: US)
  Receive Date: 20121227
  Receipt Date: 20131220
  Transmission Date: 20140711
  Serious: Yes (Other)
  Sender: FDA-Public Use
  Company Number: US-BAYER-2012-135285

PATIENT
  Sex: Female

DRUGS (5)
  1. YASMIN [Suspect]
     Dosage: UNK
     Dates: start: 2008, end: 201207
  2. YAZ [Suspect]
     Dosage: UNK
     Dates: start: 2008, end: 201207
  3. OCELLA [Suspect]
     Dosage: UNK
     Dates: start: 2008, end: 201207
  4. BEYAZ [Suspect]
     Dosage: UNK
     Dates: start: 2008, end: 201207
  5. LEXAPRO [Concomitant]
     Dosage: 10 MG, UNK

REACTIONS (7)
  - Cholelithiasis [None]
  - Cholecystitis chronic [None]
  - Injury [None]
  - Pain [None]
  - Emotional distress [None]
  - Anxiety [None]
  - Psychological trauma [None]
